FAERS Safety Report 15208263 (Version 1)
Quarter: 2018Q3

REPORT INFORMATION
  Report Type: Spontaneous
  Country: US (occurrence: US)
  Receive Date: 20180727
  Receipt Date: 20180727
  Transmission Date: 20181010
  Serious: Yes (Other)
  Sender: FDA-Public Use
  Company Number: US-AMNEAL PHARMACEUTICALS-2018AMN00433

PATIENT
  Age: 1 Day
  Sex: Female
  Weight: 3.5 kg

DRUGS (2)
  1. BUPRENORPHINE HYDROCHLORIDE. [Concomitant]
     Active Substance: BUPRENORPHINE HYDROCHLORIDE
     Dosage: 16 MG, UNK
     Route: 050
     Dates: start: 201206, end: 20130325
  2. FOLIC ACID. [Suspect]
     Active Substance: FOLIC ACID
     Indication: PRODUCT USED FOR UNKNOWN INDICATION
     Dosage: UNK
     Route: 050

REACTIONS (4)
  - Developmental hip dysplasia [Recovered/Resolved]
  - Drug withdrawal syndrome neonatal [Recovered/Resolved]
  - Foetal exposure during pregnancy [Unknown]
  - Exposure via breast milk [Unknown]

NARRATIVE: CASE EVENT DATE: 20130320
